FAERS Safety Report 18096016 (Version 3)
Quarter: 2020Q4

REPORT INFORMATION
  Report Type: Spontaneous
  Country: US (occurrence: US)
  Receive Date: 20200731
  Receipt Date: 20201207
  Transmission Date: 20210113
  Serious: No
  Sender: FDA-Public Use
  Company Number: US-SA-2020SA194539

PATIENT

DRUGS (2)
  1. DUPIXENT [Suspect]
     Active Substance: DUPILUMAB
     Indication: DERMATITIS
     Dosage: 600 MG, 1X
     Route: 058
     Dates: start: 20200717, end: 20200717
  2. DUPIXENT [Suspect]
     Active Substance: DUPILUMAB
     Dosage: 300 MG, QOW
     Route: 058
     Dates: start: 2020

REACTIONS (6)
  - Dermatitis [Unknown]
  - Injection site pain [Recovered/Resolved]
  - Chapped lips [Unknown]
  - Dyspnoea [Unknown]
  - Lip swelling [Unknown]
  - Pruritus [Unknown]

NARRATIVE: CASE EVENT DATE: 2020
